FAERS Safety Report 4746376-7 (Version None)
Quarter: 2005Q3

REPORT INFORMATION
  Report Type: 
  Country: None (occurrence: None)
  Receive Date: 20050816
  Receipt Date: 20050816
  Transmission Date: 20060218
  Serious: Yes (Hospitalization)
  Sender: FDA-Public Use
  Company Number: None

PATIENT
  Age: 23 Year
  Sex: Male
  Weight: 94 kg

DRUGS (2)
  1. SEROQUEL [Suspect]
     Indication: ANXIETY
     Dosage: 50 MG QHS ORAL
     Route: 048
     Dates: start: 20050101, end: 20050404
  2. SEROQUEL [Suspect]
     Indication: MENTAL DISORDER
     Dosage: 50 MG QHS ORAL
     Route: 048
     Dates: start: 20050101, end: 20050404

REACTIONS (4)
  - ABDOMINAL DISCOMFORT [None]
  - CHROMATURIA [None]
  - RHABDOMYOLYSIS [None]
  - SUPRAPUBIC PAIN [None]
